FAERS Safety Report 7928531-8 (Version None)
Quarter: 2011Q4

REPORT INFORMATION
  Report Type: 
  Country: None (occurrence: None)
  Receive Date: 20111118
  Receipt Date: 20111110
  Transmission Date: 20120403
  Serious: Yes (Life-Threatening)
  Sender: FDA-Public Use
  Company Number: DE-TEVA-309011GER

PATIENT
  Sex: Female

DRUGS (1)
  1. CODEINE SUL TAB [Suspect]
     Route: 048

REACTIONS (1)
  - RESUSCITATION [None]
